FAERS Safety Report 7818957-5 (Version None)
Quarter: 2011Q4

REPORT INFORMATION
  Report Type: 
  Country: None (occurrence: None)
  Receive Date: 20111017
  Receipt Date: 20111017
  Transmission Date: 20120403
  Serious: Yes (Hospitalization)
  Sender: FDA-Public Use
  Company Number: None

PATIENT
  Sex: Male
  Weight: 72.5755 kg

DRUGS (1)
  1. CABAZITAXEL [Suspect]
     Indication: OESOPHAGEAL CARCINOMA
     Dosage: 25MG/M2 IV DAY 1 Q 21 DAYS
     Route: 042
     Dates: start: 20110922

REACTIONS (4)
  - DIARRHOEA [None]
  - IMPAIRED GASTRIC EMPTYING [None]
  - NAUSEA [None]
  - VOMITING [None]
